FAERS Safety Report 4994203-5 (Version None)
Quarter: 2006Q2

REPORT INFORMATION
  Report Type: 
  Country: None (occurrence: None)
  Receive Date: 20060503
  Receipt Date: 20060425
  Transmission Date: 20061013
  Serious: Yes (Death, Life-Threatening)
  Sender: FDA-Public Use
  Company Number: HQWYE641705APR06

PATIENT
  Age: 51 Year
  Sex: Female

DRUGS (10)
  1. TIGECYCLINE          (TIGECYCLINE, INJECTION) [Suspect]
     Indication: PNEUMONIA
     Dosage: 100 MG LOADING THEN 50 MG EVERY 12 HOURS
     Route: 042
     Dates: start: 20060317, end: 20060328
  2. HYDROCORTISONE [Concomitant]
  3. SALBUTAMOL [Concomitant]
  4. IPRATROPIUM BROMIDE [Concomitant]
  5. RANITIDINE [Concomitant]
  6. MOSAPRAMIDE [Concomitant]
  7. HEPARIN CALCIUM [Concomitant]
  8. THEOPHYLLINE [Concomitant]
  9. DOPAMINE [Concomitant]
  10. LEVOTHYROXINE SODIUM [Concomitant]

REACTIONS (6)
  - BRADYCARDIA [None]
  - CARDIAC ARREST [None]
  - CEREBRAL INFARCTION [None]
  - HAEMOPTYSIS [None]
  - THROMBOTIC THROMBOCYTOPENIC PURPURA [None]
  - VENTRICULAR FIBRILLATION [None]
